FAERS Safety Report 16684685 (Version 2)
Quarter: 2019Q3

REPORT INFORMATION
  Report Type: Report from Study
  Country: US (occurrence: US)
  Receive Date: 20190808
  Receipt Date: 20190923
  Transmission Date: 20191004
  Serious: Yes (Hospitalization)
  Sender: FDA-Public Use
  Company Number: US-PFIZER INC-2019335778

PATIENT
  Age: 28 Year
  Sex: Female
  Weight: 44 kg

DRUGS (7)
  1. METHOTREXATE SODIUM. [Suspect]
     Active Substance: METHOTREXATE SODIUM
     Indication: ACUTE LYMPHOCYTIC LEUKAEMIA
     Dosage: 15 MG IT TOTAL DOSE ON DAYS 1, 8, 15, AND 22
     Route: 037
     Dates: start: 20190521, end: 20190613
  2. CYTARABINE. [Suspect]
     Active Substance: CYTARABINE
     Indication: ACUTE LYMPHOCYTIC LEUKAEMIA
     Dosage: 75 MG/M2 IV OR SC ON DAYS 1-4 (I.E. 4 DOSES), 8-11, 29-32, AND 36-39
     Route: 042
     Dates: start: 20190521, end: 20190628
  3. MERCAPTOPURINE. [Suspect]
     Active Substance: MERCAPTOPURINE
     Indication: ACUTE LYMPHOCYTIC LEUKAEMIA
     Dosage: 60 MG/M2 PO ON DAYS 1-14 AND 29--42
     Route: 048
     Dates: start: 20190521, end: 20190701
  4. ONCASPAR [Suspect]
     Active Substance: PEGASPARGASE
     Indication: ACUTE LYMPHOCYTIC LEUKAEMIA
     Dosage: 2000 IU/M2 IV ON DAYS 15 AND 43, (CAP DOSE AT 3750 IU)
     Route: 042
     Dates: start: 20190605, end: 20190605
  5. INOTUZUMAB OZOGAMICIN [Suspect]
     Active Substance: INOTUZUMAB OZOGAMICIN
     Indication: ACUTE LYMPHOCYTIC LEUKAEMIA
     Dosage: 0.5 MG/M2 /DAY IV ON DAY 1, 8 AND 15 FOR 2 CYCLES
     Route: 042
     Dates: start: 20190313, end: 20190424
  6. VINCRISTINE SULFATE. [Suspect]
     Active Substance: VINCRISTINE SULFATE
     Indication: ACUTE LYMPHOCYTIC LEUKAEMIA
     Dosage: 1.5 MG/M2 (MAXIMUM 2 MG) IV ONCE PER WEEK ON DAYS 15, 22, 43, AND 50
     Route: 042
     Dates: start: 20190605, end: 20190613
  7. CYCLOPHOSPHAMIDE. [Suspect]
     Active Substance: CYCLOPHOSPHAMIDE
     Indication: ACUTE LYMPHOCYTIC LEUKAEMIA
     Dosage: 1000 MG/M2 IV ON DAY 1 AND DAY 29
     Route: 042
     Dates: start: 20190521, end: 20190619

REACTIONS (1)
  - Sepsis [Recovered/Resolved]

NARRATIVE: CASE EVENT DATE: 20190701
